FAERS Safety Report 8337625-7 (Version None)
Quarter: 2012Q2

REPORT INFORMATION
  Report Type: 
  Country: None (occurrence: None)
  Receive Date: 20120504
  Receipt Date: 20120423
  Transmission Date: 20120825
  Serious: Yes (Hospitalization)
  Sender: FDA-Public Use
  Company Number: JP-ROCHE-584008

PATIENT
  Sex: Male
  Weight: 97 kg

DRUGS (5)
  1. FLUOROURACIL [Concomitant]
     Dosage: ROUTE REPORTED AS INTRAVENOUS BOLUS
     Route: 042
  2. FLUOROURACIL [Concomitant]
     Dosage: ROUTE REPORTED AS INTRAVENOUS DRIP
     Route: 042
  3. AVASTIN [Suspect]
     Indication: RECTAL CANCER
     Route: 041
     Dates: start: 20080508, end: 20080919
  4. OXALIPLATIN [Concomitant]
     Route: 041
  5. LEUCOVORIN CALCIUM [Concomitant]
     Route: 041

REACTIONS (6)
  - CATHETER SITE ERYTHEMA [None]
  - CATHETER SITE PRURITUS [None]
  - IMPAIRED HEALING [None]
  - CATHETER SITE SWELLING [None]
  - WOUND INFECTION [None]
  - WOUND DEHISCENCE [None]
